FAERS Safety Report 9815355 (Version 1)
Quarter: 2014Q1

REPORT INFORMATION
  Report Type: Spontaneous
  Country: FR (occurrence: FR)
  Receive Date: 20140114
  Receipt Date: 20140114
  Transmission Date: 20141002
  Serious: Yes (Hospitalization)
  Sender: FDA-Public Use
  Company Number: FR-ASTRAZENECA-2014SE01859

PATIENT
  Age: 63 Year
  Sex: Male

DRUGS (13)
  1. CRESTOR [Suspect]
     Route: 048
     Dates: end: 20131127
  2. ZOPICLONE [Concomitant]
     Route: 048
  3. VENLAFAXINE [Concomitant]
     Indication: BIPOLAR I DISORDER
     Route: 048
  4. DEPAKOTE [Concomitant]
     Indication: BIPOLAR I DISORDER
     Route: 048
  5. RISPERDAL [Concomitant]
     Indication: BIPOLAR I DISORDER
     Route: 048
  6. ANTIDEPRESSANTS [Concomitant]
     Indication: BIPOLAR I DISORDER
  7. KARDEGIC [Concomitant]
     Route: 048
  8. METFORMINE [Concomitant]
     Route: 048
  9. PANTOPRAZOLE [Concomitant]
     Route: 048
  10. ZANIDIP [Concomitant]
     Route: 048
  11. LASILIX [Concomitant]
     Route: 048
  12. PREVISCAN [Concomitant]
     Route: 048
  13. NEUROLEPTICS [Concomitant]
     Indication: BIPOLAR I DISORDER

REACTIONS (3)
  - Pain [Unknown]
  - Myositis [Recovered/Resolved]
  - Iron deficiency anaemia [Unknown]
